FAERS Safety Report 5305207-7 (Version None)
Quarter: 2007Q1

REPORT INFORMATION
  Report Type: 
  Country: None (occurrence: None)
  Receive Date: 20070201
  Receipt Date: 20061113
  Transmission Date: 20070707
  Serious: No
  Sender: FDA-Public Use
  Company Number: 2006PV025164

PATIENT
  Age: 52 Year
  Sex: Male
  Weight: 107.9561 kg

DRUGS (9)
  1. BYETTA [Suspect]
     Indication: DIABETES MELLITUS NON-INSULIN-DEPENDENT
     Dosage: SEE IMAGE
     Route: 058
     Dates: start: 20061001, end: 20061031
  2. BYETTA [Suspect]
     Indication: DIABETES MELLITUS NON-INSULIN-DEPENDENT
     Dosage: SEE IMAGE
     Route: 058
     Dates: start: 20061101
  3. ACTOS [Concomitant]
  4. GLIPIZIDE [Concomitant]
  5. RUBOXISTAURIN (CLINICAL TRIAL MED) [Concomitant]
  6. ASPIRIN [Concomitant]
  7. INJECTION SITE INDURATION [Concomitant]
  8. DECREASED APPETITE [Concomitant]
  9. INJECTION SITE BRUISING [Concomitant]

REACTIONS (9)
  - BLOOD GLUCOSE INCREASED [None]
  - DECREASED APPETITE [None]
  - FREQUENT BOWEL MOVEMENTS [None]
  - GLYCOSYLATED HAEMOGLOBIN INCREASED [None]
  - INCREASED APPETITE [None]
  - INJECTION SITE BRUISING [None]
  - INJECTION SITE EXTRAVASATION [None]
  - INJECTION SITE INDURATION [None]
  - WEIGHT DECREASED [None]
